FAERS Safety Report 6987275-X (Version None)
Quarter: 2010Q3

REPORT INFORMATION
  Report Type: 
  Country: None (occurrence: None)
  Receive Date: 20100916
  Receipt Date: 20100907
  Transmission Date: 20110219
  Serious: Yes (Other)
  Sender: FDA-Public Use
  Company Number: DE-TYCO HEALTHCARE/MALLINCKRODT-T201001845

PATIENT
  Age: 72 Year
  Sex: Female

DRUGS (4)
  1. EXALGO [Suspect]
     Indication: OSTEOPOROTIC FRACTURE
     Dosage: 32 MG, QD
     Route: 048
     Dates: start: 20100501, end: 20100808
  2. EXALGO [Suspect]
     Dosage: ONE 16 MG TABLET PLUS 4 MG TABLET THREE TIMES A DAY
     Route: 048
     Dates: start: 20100809
  3. LYRICA [Concomitant]
     Indication: OSTEOPOROTIC FRACTURE
     Dosage: 75 MG, 2 IN 1 DAY
  4. CITALOPRAM HYDROBROMIDE [Concomitant]
     Indication: OSTEOPOROTIC FRACTURE
     Dosage: 20 MG, QD

REACTIONS (5)
  - CONFUSIONAL STATE [None]
  - DEHYDRATION [None]
  - DYSKINESIA [None]
  - FEBRILE INFECTION [None]
  - WITHDRAWAL SYNDROME [None]
